FAERS Safety Report 4902969-5 (Version None)
Quarter: 2006Q1

REPORT INFORMATION
  Report Type: 
  Country: None (occurrence: None)
  Receive Date: 20060207
  Receipt Date: 20060123
  Transmission Date: 20060701
  Serious: Yes (Death)
  Sender: FDA-Public Use
  Company Number: 2006AP00405

PATIENT
  Age: 26254 Day
  Sex: Male

DRUGS (1)
  1. CASODEX [Suspect]
     Indication: PROSTATE CANCER
     Route: 048
     Dates: start: 20051214

REACTIONS (4)
  - CARDIO-RESPIRATORY ARREST [None]
  - DECREASED APPETITE [None]
  - HYPOVENTILATION [None]
  - SUDDEN DEATH [None]
